FAERS Safety Report 4415053-4 (Version None)
Quarter: 2004Q3

REPORT INFORMATION
  Report Type: 
  Country: None (occurrence: None)
  Receive Date: 20040803
  Receipt Date: 20040803
  Transmission Date: 20050211
  Serious: Yes (Hospitalization)
  Sender: FDA-Public Use
  Company Number: None

PATIENT
  Age: 47 Year
  Sex: Male
  Weight: 98.1 kg

DRUGS (2)
  1. PRAZOSIN HCL [Suspect]
     Indication: HYPERTENSION
     Dosage: 8MG, 4MG BID, ORAL
     Route: 048
     Dates: start: 20031103, end: 20040804
  2. METHOCARBAMOL [Suspect]
     Indication: MUSCLE CRAMP
     Dosage: 1000 MG, 500MG BI, ORAL
     Route: 048
     Dates: start: 20040722

REACTIONS (1)
  - BLOOD PRESSURE ORTHOSTATIC [None]
